FAERS Safety Report 5530163-6 (Version None)
Quarter: 2007Q4

REPORT INFORMATION
  Report Type: 
  Country: None (occurrence: None)
  Receive Date: 20071130
  Receipt Date: 20071121
  Transmission Date: 20080405
  Serious: Yes (Other)
  Sender: FDA-Public Use
  Company Number: BR-JNJFOC-20071108438

PATIENT
  Age: 36 Year
  Sex: Female
  Weight: 60 kg

DRUGS (4)
  1. ACETAMINOPHEN W/ CODEINE [Suspect]
     Indication: INTERVERTEBRAL DISC PROTRUSION
     Dosage: 500MG/30MG   ACETAMINOPHEN / CODEINE
     Route: 048
  2. ARCOXIA [Concomitant]
     Indication: INTERVERTEBRAL DISC PROTRUSION
     Route: 048
  3. MIO-CITALGAN [Concomitant]
     Indication: INTERVERTEBRAL DISC PROTRUSION
     Route: 065
  4. PURAN T4 [Concomitant]
     Indication: HYPOTHYROIDISM
     Dosage: 15 YEARS
     Route: 065

REACTIONS (5)
  - ABDOMINAL PAIN UPPER [None]
  - HYPERHIDROSIS [None]
  - PAIN IN EXTREMITY [None]
  - PRESYNCOPE [None]
  - SERUM FERRITIN DECREASED [None]
